FAERS Safety Report 7411317-0 (Version None)
Quarter: 2011Q2

REPORT INFORMATION
  Report Type: 
  Country: None (occurrence: None)
  Receive Date: 20110413
  Receipt Date: 20110404
  Transmission Date: 20111010
  Serious: Yes (Hospitalization, Other)
  Sender: FDA-Public Use
  Company Number: US-RB-010505-10

PATIENT
  Age: 45 Year
  Sex: Male

DRUGS (2)
  1. SUBOXONE [Suspect]
     Indication: PRODUCT USED FOR UNKNOWN INDICATION
     Dosage: SUBLINGUAL FILM; DOSING INFORMATION UNKNOWN
     Route: 065
  2. SUBOXONE [Suspect]
     Indication: PRODUCT USED FOR UNKNOWN INDICATION
     Dosage: DOSING DETAILS UNKNOWN
     Route: 065

REACTIONS (20)
  - SOMNAMBULISM [None]
  - DRUG WITHDRAWAL SYNDROME [None]
  - BONE PAIN [None]
  - ANXIETY [None]
  - PANIC ATTACK [None]
  - TREMOR [None]
  - CONVULSION [None]
  - INSOMNIA [None]
  - MENTAL DISORDER [None]
  - TINNITUS [None]
  - DECREASED APPETITE [None]
  - DIARRHOEA [None]
  - BACK PAIN [None]
  - HYPERTENSION [None]
  - THERAPEUTIC RESPONSE UNEXPECTED [None]
  - HYPERHIDROSIS [None]
  - NAUSEA [None]
  - BLOOD PRESSURE DECREASED [None]
  - DISTURBANCE IN ATTENTION [None]
  - IRRITABILITY [None]
